FAERS Safety Report 15028765 (Version 1)
Quarter: 2018Q2

REPORT INFORMATION
  Report Type: Spontaneous
  Country: US (occurrence: US)
  Receive Date: 20180619
  Receipt Date: 20180619
  Transmission Date: 20180711
  Serious: Yes (Other)
  Sender: FDA-Public Use
  Company Number: US-SA-2018SA068560

PATIENT
  Age: 59 Year
  Sex: Female
  Weight: 57 kg

DRUGS (4)
  1. TAXOTERE [Suspect]
     Active Substance: DOCETAXEL
     Indication: BREAST CANCER
     Dosage: 142.5 MG,Q3W
     Route: 042
     Dates: start: 20110321, end: 20110321
  2. TAXOTERE [Suspect]
     Active Substance: DOCETAXEL
     Dosage: 142.5 MG,Q3W
     Route: 042
     Dates: start: 20110704, end: 20110704
  3. HERCEPTIN [Concomitant]
     Active Substance: TRASTUZUMAB
  4. PARAPLATIN [Concomitant]
     Active Substance: CARBOPLATIN

REACTIONS (2)
  - Alopecia [Recovering/Resolving]
  - Psychological trauma [Unknown]
